FAERS Safety Report 12548601 (Version 1)
Quarter: 2016Q3

REPORT INFORMATION
  Report Type: Spontaneous
  Country: US (occurrence: None)
  Receive Date: 20160711
  Receipt Date: 20160711
  Transmission Date: 20161109
  Serious: Yes (Other)
  Sender: FDA-Public Use
  Company Number: None

PATIENT
  Age: 46 Year
  Sex: Male
  Weight: 111.13 kg

DRUGS (6)
  1. KLONOPIN [Concomitant]
     Active Substance: CLONAZEPAM
  2. DISULFIRAM. [Concomitant]
     Active Substance: DISULFIRAM
  3. QUETIAPINE FUMARATE 25MG, 25 MG [Suspect]
     Active Substance: QUETIAPINE FUMARATE
     Indication: INSOMNIA
     Route: 048
     Dates: start: 20160709
  4. LUVOX [Concomitant]
     Active Substance: FLUVOXAMINE MALEATE
  5. QUETIAPINE FUMARATE 25MG, 25 MG [Suspect]
     Active Substance: QUETIAPINE FUMARATE
     Indication: ANXIETY
     Route: 048
     Dates: start: 20160709
  6. MULTI VITAMIN [Concomitant]
     Active Substance: VITAMINS

REACTIONS (4)
  - Dizziness [None]
  - Product substitution issue [None]
  - Insomnia [None]
  - Irritability [None]

NARRATIVE: CASE EVENT DATE: 20160709
